FAERS Safety Report 8823041 (Version 1)
Quarter: 2012Q4

REPORT INFORMATION
  Report Type: 
  Country: US (occurrence: US)
  Receive Date: 20121003
  Receipt Date: 20121003
  Transmission Date: 20130627
  Serious: Yes (Other)
  Sender: FDA-Public Use
  Company Number: US-ROCHE-1131081

PATIENT
  Sex: Female

DRUGS (8)
  1. RITUXAN [Suspect]
     Indication: WALDENSTROM^S MACROGLOBULINAEMIA
     Route: 065
     Dates: start: 20000727
  2. RITUXAN [Suspect]
     Indication: SPINAL OSTEOARTHRITIS
  3. PREMPRO [Concomitant]
  4. PRILOSEC [Concomitant]
  5. FLAGYL [Concomitant]
  6. PROMETHAZINE [Concomitant]
  7. HYOSCYAMINE [Concomitant]
  8. IMODIUM ADVANCED [Concomitant]

REACTIONS (5)
  - Diarrhoea [Not Recovered/Not Resolved]
  - Nausea [Recovered/Resolved]
  - Vomiting [Recovered/Resolved]
  - Epistaxis [Unknown]
  - Pyrexia [Recovered/Resolved]
